FAERS Safety Report 8589666-2 (Version None)
Quarter: 2012Q3

REPORT INFORMATION
  Report Type: 
  Country: None (occurrence: None)
  Receive Date: 20120813
  Receipt Date: 20120801
  Transmission Date: 20120928
  Serious: Yes (Death, Hospitalization)
  Sender: FDA-Public Use
  Company Number: US-ELI_LILLY_AND_COMPANY-US201108001742

PATIENT
  Age: 71 Year
  Sex: Male
  Weight: 79.909 kg

DRUGS (15)
  1. GEMCITABINE HYDROCHLORIDE [Suspect]
     Indication: PANCREATIC CARCINOMA
     Dosage: 2020 MG, UNK
     Route: 042
     Dates: start: 20110720, end: 20110720
  2. HUMALOG [Concomitant]
     Indication: DIABETES MELLITUS
     Dosage: UNK
     Dates: start: 20110713
  3. OXYCODONE [Concomitant]
     Indication: PAIN
     Dosage: UNK, PRN
     Dates: start: 20110719
  4. ONDANSETRON [Concomitant]
     Indication: NAUSEA
     Dosage: UNK
     Dates: start: 20110713
  5. ADVAIR DISKUS 100/50 [Concomitant]
     Indication: CHRONIC OBSTRUCTIVE PULMONARY DISEASE
     Dosage: UNK
     Dates: start: 20110713
  6. PROCHLORPERAZINE [Concomitant]
     Indication: NAUSEA
     Dosage: UNK, PRN
     Dates: start: 20110713
  7. FENTANYL [Concomitant]
     Indication: PAIN
     Dosage: UNK
     Dates: start: 20110713
  8. TEMAZEPAM [Concomitant]
     Indication: INSOMNIA
     Dosage: UNK
     Dates: start: 20110713
  9. SPIRIVA [Concomitant]
     Indication: CHRONIC OBSTRUCTIVE PULMONARY DISEASE
     Dosage: UNK
     Dates: start: 20110713
  10. ATENOLOL [Concomitant]
     Indication: HYPERTENSION
     Dosage: UNK
     Dates: start: 20060601
  11. CARISOPRODOL [Concomitant]
     Indication: MUSCLE SPASMS
     Dosage: UNK
     Dates: start: 20110713
  12. METHADONE HYDROCHLORIDE [Concomitant]
     Indication: CANCER PAIN
     Dosage: UNK
     Dates: start: 20110719
  13. TASISULAM SODIUM [Suspect]
     Indication: PANCREATIC CARCINOMA
     Dosage: 2518 MG, UNK
     Route: 042
     Dates: start: 20110720, end: 20110720
  14. ALPRAZOLAM [Concomitant]
     Indication: ANXIETY
     Dosage: UNK
     Dates: start: 20110713
  15. ALBUTEROL [Concomitant]
     Indication: CHRONIC OBSTRUCTIVE PULMONARY DISEASE
     Dosage: UNK
     Dates: start: 20110713

REACTIONS (3)
  - RESPIRATORY FAILURE [None]
  - PNEUMONIA [None]
  - PNEUMONIA ASPIRATION [None]
